FAERS Safety Report 8529939-2 (Version None)
Quarter: 2012Q3

REPORT INFORMATION
  Report Type: 
  Country: None (occurrence: None)
  Receive Date: 20120723
  Receipt Date: 20120712
  Transmission Date: 20120928
  Serious: Yes (Other)
  Sender: FDA-Public Use
  Company Number: US-GENZYME-LEUK-1000246

PATIENT
  Age: 71 Year
  Sex: Male
  Weight: 74 kg

DRUGS (6)
  1. ANTINEOPLASTIC AGENTS [Suspect]
     Indication: MALIGNANT MELANOMA
     Dosage: 10 MG/KG, ONCE DAY 1 OF 21 DAY CYCLE
     Route: 042
     Dates: start: 20110422, end: 20110422
  2. ANTINEOPLASTIC AGENTS [Suspect]
     Dosage: 10 MG/KG, ONCE DAY 1 OF 21 DAY CYCLE
     Route: 042
     Dates: start: 20110825, end: 20110825
  3. LEUKINE [Suspect]
     Indication: MALIGNANT MELANOMA
     Dosage: 250 MCG, QD DAYS 1-14
     Route: 058
     Dates: start: 20110422
  4. LEUKINE [Suspect]
     Dosage: 250 MCG, UNK
     Route: 058
     Dates: end: 20110817
  5. ANTINEOPLASTIC AGENTS [Suspect]
     Dosage: 10 MG/KG, ONCE DAY 1 OF 21 DAY CYCLE
     Route: 042
     Dates: start: 20110916, end: 20110916
  6. LEUKINE [Suspect]
     Dosage: 250 MCG, QD DAYS 1-14
     Route: 058
     Dates: start: 20110916, end: 20110929

REACTIONS (5)
  - COLITIS ULCERATIVE [None]
  - DEHYDRATION [None]
  - DIARRHOEA [None]
  - WEIGHT DECREASED [None]
  - MUSCULAR WEAKNESS [None]
